FAERS Safety Report 24237463 (Version 1)
Quarter: 2024Q3

REPORT INFORMATION
  Report Type: Spontaneous
  Country: US (occurrence: US)
  Receive Date: 20240822
  Receipt Date: 20240822
  Transmission Date: 20241016
  Serious: No
  Sender: RECKITT BENCKISER
  Company Number: US-PROD-AS2-212756134-RB-138419-2023

PATIENT
  Sex: Male

DRUGS (4)
  1. MUCINEX D [Suspect]
     Active Substance: GUAIFENESIN\PSEUDOEPHEDRINE HYDROCHLORIDE
     Indication: Product used for unknown indication
     Dosage: UNKNOWN
     Route: 065
  2. OFEV [Concomitant]
     Active Substance: NINTEDANIB
     Indication: Idiopathic pulmonary fibrosis
     Dosage: TOOK 300 MG PER DAY
     Route: 048
     Dates: start: 20230622
  3. LIPITOR [Concomitant]
     Active Substance: ATORVASTATIN CALCIUM
     Indication: Product used for unknown indication
     Dosage: UNK
     Route: 065
  4. DILTIAZEM [Concomitant]
     Active Substance: DILTIAZEM
     Indication: Product used for unknown indication
     Dosage: UNKNOWN
     Route: 065

REACTIONS (7)
  - Dyspnoea [Not Recovered/Not Resolved]
  - Neck pain [Unknown]
  - Insomnia [Unknown]
  - Pneumonia [Unknown]
  - Cough [Unknown]
  - Myalgia [Unknown]
  - Productive cough [Unknown]
